FAERS Safety Report 6131154-7 (Version None)
Quarter: 2009Q1

REPORT INFORMATION
  Report Type: 
  Country: None (occurrence: None)
  Receive Date: 20090325
  Receipt Date: 20090325
  Transmission Date: 20090719
  Serious: Yes (Life-Threatening, Hospitalization)
  Sender: FDA-Public Use
  Company Number: PHHO2003BE13759

PATIENT
  Sex: Female
  Weight: 49.7 kg

DRUGS (6)
  1. CGS 20267 T30748+ [Suspect]
     Indication: BREAST CANCER
     Dosage: 2.5 MG, QD
     Route: 048
  2. BEFACT FORTE [Concomitant]
  3. VENTOLIN [Concomitant]
     Indication: ASTHMA
  4. FLUTICASONE PROPIONATE [Concomitant]
  5. CARDIOASPIRINE [Concomitant]
     Indication: ANGINA PECTORIS
  6. CALCIUM [Concomitant]
     Indication: OSTEOPOROSIS

REACTIONS (18)
  - ATRIAL FIBRILLATION [None]
  - CARDIOGENIC SHOCK [None]
  - CARDIOMEGALY [None]
  - CEREBELLAR ATROPHY [None]
  - CEREBROVASCULAR ACCIDENT [None]
  - COGNITIVE DISORDER [None]
  - DEPRESSION [None]
  - DIET REFUSAL [None]
  - DYSARTHRIA [None]
  - DYSPHAGIA [None]
  - HEMIANOPIA [None]
  - HEMIPARESIS [None]
  - HEMIPLEGIA [None]
  - MUSCULOSKELETAL PAIN [None]
  - PNEUMONIA ASPIRATION [None]
  - PRODUCTIVE COUGH [None]
  - ROTATOR CUFF SYNDROME [None]
  - SPUTUM DISCOLOURED [None]
